FAERS Safety Report 6462206-X (Version None)
Quarter: 2009Q4

REPORT INFORMATION
  Report Type: 
  Country: None (occurrence: None)
  Receive Date: 20091130
  Receipt Date: 20091118
  Transmission Date: 20100525
  Serious: Yes (Other)
  Sender: FDA-Public Use
  Company Number: US-TEVA-215660USA

PATIENT
  Sex: Male

DRUGS (8)
  1. METHOTREXATE SOLUTION FOR INJECTION, 25 MG/ML [Suspect]
     Indication: MULTIPLE SCLEROSIS
     Route: 058
     Dates: start: 20050101, end: 20080314
  2. ABATACEPT [Suspect]
     Indication: RHEUMATOID ARTHRITIS
     Route: 058
     Dates: start: 20090202
  3. ACETYLSALICYLIC ACID [Concomitant]
     Dates: start: 20091007, end: 20091021
  4. MELOXICAM [Concomitant]
     Dates: start: 20080926, end: 20091021
  5. CALCIUM + VITAMIN D [Concomitant]
     Dates: start: 20080314
  6. FOLIC ACID [Concomitant]
     Dates: start: 20040801
  7. MOEXIPRIL HCL [Concomitant]
     Dates: start: 20010301
  8. MORNIFLUMATE [Concomitant]
     Dates: start: 20050301

REACTIONS (1)
  - BASAL CELL CARCINOMA [None]
